FAERS Safety Report 11320067 (Version 1)
Quarter: 2015Q3

REPORT INFORMATION
  Report Type: Spontaneous
  Country: JP (occurrence: JP)
  Receive Date: 20150729
  Receipt Date: 20150729
  Transmission Date: 20151125
  Serious: Yes (Hospitalization, Other)
  Sender: FDA-Public Use
  Company Number: JP-PFIZER INC-2015249267

PATIENT
  Age: 7 Decade

DRUGS (3)
  1. LYRICA [Suspect]
     Active Substance: PREGABALIN
     Indication: POST HERPETIC NEURALGIA
     Dosage: 25 MG 2X/DAY (MORNING AND EVENING)
     Route: 048
     Dates: start: 20150714
  2. LYRICA [Suspect]
     Active Substance: PREGABALIN
     Dosage: 100 MG DAILY (MORNING: 25 MG, EVENING: 75 MG)
     Route: 048
     Dates: start: 20150716
  3. LYRICA [Suspect]
     Active Substance: PREGABALIN
     Dosage: 75 MG 3X/DAY (MORNING, NOON, EVENING)
     Route: 048
     Dates: start: 20150717

REACTIONS (2)
  - Dizziness [Recovered/Resolved]
  - Abasia [Recovered/Resolved]

NARRATIVE: CASE EVENT DATE: 20150718
